FAERS Safety Report 18080761 (Version 3)
Quarter: 2020Q3

REPORT INFORMATION
  Report Type: Report from Study
  Country: None (occurrence: IL)
  Receive Date: 20200728
  Receipt Date: 20200804
  Transmission Date: 20201103
  Serious: Yes (Hospitalization)
  Sender: FDA-Public Use
  Company Number: IL-ABBVIE-20K-082-3499822-00

PATIENT
  Age: 59 Year
  Sex: Female

DRUGS (2)
  1. DUODOPA [Suspect]
     Active Substance: CARBIDOPA\LEVODOPA
  2. DUODOPA [Suspect]
     Active Substance: CARBIDOPA\LEVODOPA
     Indication: PARKINSON^S DISEASE
     Dosage: CMD 15 ML,?CURRENT CONTINUOUS DOSE 4.8 ML/HOUR,?CURRENT EXTRA DOSE 2.5 ML
     Route: 050
     Dates: start: 20200706, end: 202007

REACTIONS (4)
  - Panic attack [Unknown]
  - On and off phenomenon [Unknown]
  - Stoma site erythema [Not Recovered/Not Resolved]
  - Abdominal pain [Not Recovered/Not Resolved]

NARRATIVE: CASE EVENT DATE: 202007
